FAERS Safety Report 5237793-X (Version None)
Quarter: 2007Q1

REPORT INFORMATION
  Report Type: 
  Country: None (occurrence: None)
  Receive Date: 20070214
  Receipt Date: 20070207
  Transmission Date: 20070707
  Serious: Yes (Hospitalization)
  Sender: FDA-Public Use
  Company Number: 2007AC00250

PATIENT
  Age: 72 Year
  Sex: Male
  Weight: 71 kg

DRUGS (3)
  1. NEXIUM [Suspect]
     Route: 048
     Dates: start: 20060902, end: 20060921
  2. TIENAM [Concomitant]
     Indication: PANCREATIC DISORDER
     Route: 042
     Dates: start: 20060819, end: 20060819
  3. CLEXANE [Concomitant]
     Indication: EMBOLISM VENOUS
     Route: 058
     Dates: start: 20060831, end: 20061010

REACTIONS (1)
  - GRANULOCYTOPENIA [None]
